FAERS Safety Report 24197123 (Version 2)
Quarter: 2025Q1

REPORT INFORMATION
  Report Type: Report from Study
  Country: US (occurrence: US)
  Receive Date: 20240810
  Receipt Date: 20250118
  Transmission Date: 20250409
  Serious: Yes (Other)
  Sender: ABBVIE
  Company Number: US-ABBVIE-5861809

PATIENT
  Age: 66 Year
  Sex: Male
  Weight: 108.86 kg

DRUGS (8)
  1. HUMIRA [Suspect]
     Active Substance: ADALIMUMAB
     Indication: Crohn^s disease
     Dosage: CITRATE FREE?FORM STRENGTH: 40 MILLIGRAM
     Route: 058
     Dates: start: 20221103, end: 202407
  2. VIBERZI [Suspect]
     Active Substance: ELUXADOLINE
     Indication: Diarrhoea
     Dosage: 100 MILLIGRAM?ELUXADOLINE 100MG TAB (11307X)
     Route: 048
     Dates: start: 202211, end: 202407
  3. VIBERZI [Suspect]
     Active Substance: ELUXADOLINE
     Indication: Diarrhoea
  4. DICYCLOMINE [Concomitant]
     Active Substance: DICYCLOMINE HYDROCHLORIDE
     Indication: Product used for unknown indication
  5. PANTOPRAZOLE [Concomitant]
     Active Substance: PANTOPRAZOLE
     Indication: Gastrooesophageal reflux disease
  6. HYDROCHLOROTHIAZIDE [Concomitant]
     Active Substance: HYDROCHLOROTHIAZIDE
     Indication: Hypertension
  7. LOSARTAN [Concomitant]
     Active Substance: LOSARTAN
     Indication: Hypertension
  8. LEVOTHYROXINE [Concomitant]
     Active Substance: LEVOTHYROXINE
     Indication: Product used for unknown indication

REACTIONS (7)
  - Pituitary tumour recurrent [Recovering/Resolving]
  - Procedural pain [Recovering/Resolving]
  - Crohn^s disease [Not Recovered/Not Resolved]
  - Headache [Recovering/Resolving]
  - Head discomfort [Not Recovered/Not Resolved]
  - Sinusitis [Unknown]
  - Nasopharyngitis [Unknown]

NARRATIVE: CASE EVENT DATE: 20230101
